FAERS Safety Report 11976415 (Version 1)
Quarter: 2016Q1

REPORT INFORMATION
  Report Type: Spontaneous
  Country: TW (occurrence: TW)
  Receive Date: 20160129
  Receipt Date: 20160129
  Transmission Date: 20160526
  Serious: Yes (Life-Threatening)
  Sender: FDA-Public Use
  Company Number: TW-WATSON-2016-01600

PATIENT
  Age: 62 Year
  Sex: Male

DRUGS (5)
  1. HEPARIN [Suspect]
     Active Substance: HEPARIN SODIUM
     Indication: ANTICOAGULANT THERAPY
     Dosage: 8000 U BOLUS
     Route: 042
  2. HEPARIN [Suspect]
     Active Substance: HEPARIN SODIUM
     Dosage: 3000 U BOLUS
     Route: 022
  3. HEPARIN [Suspect]
     Active Substance: HEPARIN SODIUM
     Dosage: 3000 U BOLUS
     Route: 022
  4. HEPARIN [Suspect]
     Active Substance: HEPARIN SODIUM
     Dosage: 3000 U BOLUS
     Route: 042
  5. HEPARIN [Suspect]
     Active Substance: HEPARIN SODIUM
     Dosage: 3000 U BOLUS
     Route: 042

REACTIONS (3)
  - Heparin resistance [Recovered/Resolved]
  - Cardiac arrest [Recovered/Resolved]
  - Vascular stent thrombosis [Recovered/Resolved]
